FAERS Safety Report 4641797-5 (Version None)
Quarter: 2005Q2

REPORT INFORMATION
  Report Type: 
  Country: None (occurrence: None)
  Receive Date: 20050421
  Receipt Date: 20050303
  Transmission Date: 20051028
  Serious: Yes (Hospitalization)
  Sender: FDA-Public Use
  Company Number: DE-MERCK-0503DEU00039

PATIENT
  Age: 54 Year
  Sex: Female
  Weight: 75 kg

DRUGS (3)
  1. ZETIA [Suspect]
     Indication: HYPERLIPIDAEMIA
     Route: 048
     Dates: start: 20040130, end: 20041018
  2. PRAVASTATIN SODIUM [Concomitant]
     Indication: HYPERLIPIDAEMIA
     Route: 048
     Dates: start: 20000101, end: 20041018
  3. ETHINYL ESTRADIOL AND LYNESTRENOL [Concomitant]
     Indication: CONTRACEPTION
     Route: 048
     Dates: start: 19910101, end: 20041018

REACTIONS (2)
  - ENTERITIS [None]
  - LIVER DISORDER [None]
